FAERS Safety Report 4591090-4 (Version None)
Quarter: 2005Q1

REPORT INFORMATION
  Report Type: 
  Country: None (occurrence: None)
  Receive Date: 20050222
  Receipt Date: 20050222
  Transmission Date: 20050727
  Serious: Yes (Life-Threatening, Hospitalization, Other)
  Sender: FDA-Public Use
  Company Number: None

PATIENT
  Age: 56 Year
  Sex: Male
  Weight: 62.5964 kg

DRUGS (2)
  1. CISPLATIN [Suspect]
     Indication: HYPOPHARYNGEAL CANCER
     Dosage: 20MG/M2/DAY  QDX4 INTRAVENOUS
     Route: 042
     Dates: start: 20041130, end: 20041203
  2. FLUOROURACIL [Suspect]
     Indication: HYPOPHARYNGEAL CANCER
     Dosage: 1000MG/M2/DAY  INTRAVENOUS
     Route: 042
     Dates: start: 20041130, end: 20041203

REACTIONS (1)
  - ACUTE MYOCARDIAL INFARCTION [None]
